FAERS Safety Report 10925208 (Version 1)
Quarter: 2015Q1

REPORT INFORMATION
  Report Type: Spontaneous
  Country: NZ (occurrence: NZ)
  Receive Date: 20150318
  Receipt Date: 20150318
  Transmission Date: 20150721
  Serious: Yes (Hospitalization)
  Sender: FDA-Public Use
  Company Number: NZ-MYLANLABS-2015M1008522

PATIENT
  Age: 68 Year
  Sex: Male

DRUGS (1)
  1. CLOZAPINE. [Suspect]
     Active Substance: CLOZAPINE
     Route: 065

REACTIONS (9)
  - Pneumonia aspiration [Unknown]
  - Mydriasis [Unknown]
  - Acute kidney injury [Unknown]
  - Haemodynamic instability [Unknown]
  - Overdose [Unknown]
  - Toxicity to various agents [Unknown]
  - Myoclonus [Unknown]
  - Encephalopathy [Unknown]
  - Ileus [Unknown]
